FAERS Safety Report 5109857-2 (Version None)
Quarter: 2006Q3

REPORT INFORMATION
  Report Type: 
  Country: None (occurrence: None)
  Receive Date: 20060918
  Receipt Date: 20060918
  Transmission Date: 20061208
  Serious: Yes (Hospitalization, Other)
  Sender: FDA-Public Use
  Company Number: None

PATIENT
  Age: 43 Year
  Sex: Female
  Weight: 54.4316 kg

DRUGS (3)
  1. LAMISIL [Suspect]
     Indication: ONYCHOMYCOSIS
     Dosage: 1 TABLET  DAILY  ORAL
     Route: 048
  2. SYNTHROID [Concomitant]
  3. BILL CONTROL PILLS [Concomitant]

REACTIONS (8)
  - ACTIVITIES OF DAILY LIVING IMPAIRED [None]
  - ARTHRALGIA [None]
  - DRUG INEFFECTIVE [None]
  - MALAISE [None]
  - OEDEMA PERIPHERAL [None]
  - PRURITUS [None]
  - SWELLING FACE [None]
  - URTICARIA [None]
